FAERS Safety Report 12540753 (Version 1)
Quarter: 2016Q3

REPORT INFORMATION
  Report Type: Spontaneous
  Country: US (occurrence: US)
  Receive Date: 20160708
  Receipt Date: 20160708
  Transmission Date: 20161109
  Serious: No
  Sender: FDA-Public Use
  Company Number: US-BAYER-2016-133818

PATIENT
  Age: 82 Year
  Sex: Male
  Weight: 86.17 kg

DRUGS (1)
  1. CLARITIN [Suspect]
     Active Substance: LORATADINE
     Indication: SINUS OPERATION
     Dosage: 1 DF, QD
     Route: 048
     Dates: start: 20160701, end: 20160705

REACTIONS (1)
  - Product use issue [None]
